FAERS Safety Report 13786175 (Version 1)
Quarter: 2017Q3

REPORT INFORMATION
  Report Type: Spontaneous
  Country: US (occurrence: US)
  Receive Date: 20170725
  Receipt Date: 20170725
  Transmission Date: 20171127
  Serious: No
  Sender: FDA-Public Use
  Company Number: None

PATIENT
  Sex: Male

DRUGS (10)
  1. LOSARTAN. [Concomitant]
     Active Substance: LOSARTAN
  2. AMLODIPINE [Concomitant]
     Active Substance: AMLODIPINE BESYLATE
  3. DEXAMTHASONE [Concomitant]
  4. PRAMIPEXOLE. [Concomitant]
     Active Substance: PRAMIPEXOLE
  5. METFORMIN [Concomitant]
     Active Substance: METFORMIN HYDROCHLORIDE
  6. HYDRALAZINE [Concomitant]
     Active Substance: HYDRALAZINE HYDROCHLORIDE
  7. SUTENT [Suspect]
     Active Substance: SUNITINIB MALATE
     Indication: RENAL CANCER
     Dosage: QDX4 WKS, 2 WKS OFF
     Route: 048
     Dates: start: 201706
  8. FAMOTIDINE. [Concomitant]
     Active Substance: FAMOTIDINE
  9. NATEGLINIDINE [Concomitant]
  10. CARBIDOPA. [Concomitant]
     Active Substance: CARBIDOPA

REACTIONS (2)
  - Oral mucosal blistering [None]
  - Pain in extremity [None]
